FAERS Safety Report 12995212 (Version 1)
Quarter: 2016Q4

REPORT INFORMATION
  Report Type: Spontaneous
  Country: FR (occurrence: FR)
  Receive Date: 20161202
  Receipt Date: 20161202
  Transmission Date: 20170207
  Serious: Yes (Hospitalization)
  Sender: FDA-Public Use
  Company Number: FR-PFIZER INC-2016553096

PATIENT
  Age: 52 Year
  Sex: Male

DRUGS (14)
  1. ESIDREX [Suspect]
     Active Substance: HYDROCHLOROTHIAZIDE
     Indication: NEPHROTIC SYNDROME
     Dosage: 50 MG, 1X/DAY
     Dates: end: 20141119
  2. COUMADINE [Concomitant]
     Active Substance: WARFARIN SODIUM
  3. CELLCEPT [Concomitant]
     Active Substance: MYCOPHENOLATE MOFETIL\MYCOPHENOLATE MOFETIL HYDROCHLORIDE
  4. DIFFU K [Concomitant]
     Active Substance: POTASSIUM CHLORIDE
  5. PLAVIX [Concomitant]
     Active Substance: CLOPIDOGREL BISULFATE
  6. LASILIX SPECIAL /00032601/ [Suspect]
     Active Substance: FUROSEMIDE
     Indication: NEPHROTIC SYNDROME
     Dosage: 500 MG, 2X/DAY
     Dates: end: 20141119
  7. UVEDOSE [Concomitant]
     Active Substance: CHOLECALCIFEROL
  8. CORTANCYL [Concomitant]
     Active Substance: PREDNISONE
  9. NOVONORM [Concomitant]
     Active Substance: REPAGLINIDE
  10. BISOCE [Concomitant]
     Active Substance: BISOPROLOL
  11. ALDACTONE [Suspect]
     Active Substance: SPIRONOLACTONE
     Indication: NEPHROTIC SYNDROME
     Dosage: 75 MG, 1X/DAY
     Route: 048
     Dates: end: 20141119
  12. LANTUS [Concomitant]
     Active Substance: INSULIN GLARGINE
  13. LERCAN [Concomitant]
     Active Substance: LERCANIDIPINE
  14. SIMVASTATIN. [Concomitant]
     Active Substance: SIMVASTATIN

REACTIONS (4)
  - Dehydration [Recovered/Resolved]
  - Hypokalaemia [Recovered/Resolved]
  - Hyponatraemia [Recovered/Resolved]
  - Renal failure [Recovered/Resolved]

NARRATIVE: CASE EVENT DATE: 20141108
